FAERS Safety Report 11691915 (Version 19)
Quarter: 2018Q1

REPORT INFORMATION
  Report Type: Spontaneous
  Country: CA (occurrence: CA)
  Receive Date: 20151103
  Receipt Date: 20180209
  Transmission Date: 20180508
  Serious: Yes (Hospitalization, Other)
  Sender: FDA-Public Use
  Company Number: CA-ROCHE-1652821

PATIENT
  Age: 48 Year
  Sex: Female

DRUGS (25)
  1. XOLAIR [Suspect]
     Active Substance: OMALIZUMAB
     Route: 058
     Dates: start: 20160609
  2. ONBREZ BREEZHALER [Suspect]
     Active Substance: INDACATEROL
     Indication: ASTHMA
     Route: 055
  3. ALVESCO [Concomitant]
     Active Substance: CICLESONIDE
     Indication: PRODUCT USED FOR UNKNOWN INDICATION
     Dosage: 2 DF, QD
     Route: 065
  4. XOLAIR [Suspect]
     Active Substance: OMALIZUMAB
     Route: 058
     Dates: start: 20160818
  5. XOLAIR [Suspect]
     Active Substance: OMALIZUMAB
     Route: 058
     Dates: start: 20171012
  6. DEXILANT [Concomitant]
     Active Substance: DEXLANSOPRAZOLE
     Indication: PRODUCT USED FOR UNKNOWN INDICATION
     Route: 065
  7. XOLAIR [Suspect]
     Active Substance: OMALIZUMAB
     Route: 058
     Dates: start: 20170202
  8. XOLAIR [Suspect]
     Active Substance: OMALIZUMAB
     Route: 058
     Dates: start: 20170928
  9. XOLAIR [Suspect]
     Active Substance: OMALIZUMAB
     Route: 058
     Dates: start: 20160830
  10. XOLAIR [Suspect]
     Active Substance: OMALIZUMAB
     Route: 058
     Dates: start: 20170608
  11. XOLAIR [Suspect]
     Active Substance: OMALIZUMAB
     Route: 058
     Dates: start: 20170622
  12. XOLAIR [Suspect]
     Active Substance: OMALIZUMAB
     Route: 058
     Dates: start: 20161208
  13. CORTISONE [Suspect]
     Active Substance: CORTISONE\HYDROCORTISONE
     Indication: INFLUENZA
     Dosage: UNK, QD
     Route: 065
  14. CORTISONE [Suspect]
     Active Substance: CORTISONE\HYDROCORTISONE
     Indication: BRONCHOSPASM
     Dosage: 50 MG, UNK
     Route: 065
  15. SPIRIVA [Concomitant]
     Active Substance: TIOTROPIUM BROMIDE MONOHYDRATE
     Indication: PRODUCT USED FOR UNKNOWN INDICATION
     Dosage: 1 DF, QD
     Route: 065
  16. XOLAIR [Suspect]
     Active Substance: OMALIZUMAB
     Indication: ASTHMA
     Route: 058
     Dates: start: 20151019, end: 20151019
  17. XOLAIR [Suspect]
     Active Substance: OMALIZUMAB
     Route: 058
     Dates: start: 20170105
  18. XOLAIR [Suspect]
     Active Substance: OMALIZUMAB
     Route: 058
     Dates: start: 20170717
  19. XOLAIR [Suspect]
     Active Substance: OMALIZUMAB
     Route: 058
     Dates: start: 20170914
  20. XOLAIR [Suspect]
     Active Substance: OMALIZUMAB
     Route: 058
     Dates: start: 20171207
  21. DICYCLOMINE [Concomitant]
     Active Substance: DICYCLOMINE HYDROCHLORIDE
     Indication: PRODUCT USED FOR UNKNOWN INDICATION
     Route: 065
  22. METFORMIN [Concomitant]
     Active Substance: METFORMIN HYDROCHLORIDE
     Indication: PRODUCT USED FOR UNKNOWN INDICATION
     Route: 065
  23. SINGULAIR [Concomitant]
     Active Substance: MONTELUKAST SODIUM
     Indication: PRODUCT USED FOR UNKNOWN INDICATION
     Dosage: 10 MG, QD
     Route: 065
  24. CANDESARTAN. [Concomitant]
     Active Substance: CANDESARTAN
     Indication: PRODUCT USED FOR UNKNOWN INDICATION
     Route: 065
  25. SYMBICORT [Concomitant]
     Active Substance: BUDESONIDE\FORMOTEROL FUMARATE DIHYDRATE
     Indication: BRONCHOSPASM
     Dosage: 2 DF, BID
     Route: 065

REACTIONS (24)
  - Crepitations [Unknown]
  - Gastroenteritis [Unknown]
  - Adrenal insufficiency [Unknown]
  - Secretion discharge [Unknown]
  - Tooth infection [Unknown]
  - Malaise [Recovering/Resolving]
  - Influenza [Recovered/Resolved]
  - Bronchitis [Recovering/Resolving]
  - Emotional distress [Unknown]
  - Nervousness [Unknown]
  - Bronchospasm [Recovered/Resolved]
  - Dyspnoea exertional [Unknown]
  - Fungal pharyngitis [Unknown]
  - Bursitis [Unknown]
  - Wheezing [Unknown]
  - Bronchospasm [Recovered/Resolved]
  - Carpal tunnel syndrome [Unknown]
  - Drug hypersensitivity [Unknown]
  - Tonsillitis fungal [Unknown]
  - Fear of injection [Unknown]
  - Blood pressure systolic increased [Unknown]
  - Weight decreased [Unknown]
  - Sputum discoloured [Unknown]
  - Productive cough [Unknown]

NARRATIVE: CASE EVENT DATE: 2017
